FAERS Safety Report 8153207-4 (Version None)
Quarter: 2012Q1

REPORT INFORMATION
  Report Type: 
  Country: None (occurrence: None)
  Receive Date: 20120221
  Receipt Date: 20120215
  Transmission Date: 20120608
  Serious: Yes (Other)
  Sender: FDA-Public Use
  Company Number: CA-JNJFOC-20120209040

PATIENT
  Sex: Male

DRUGS (1)
  1. NICORETTE [Suspect]
     Indication: SMOKING CESSATION THERAPY
     Route: 048
     Dates: start: 20020101

REACTIONS (2)
  - DEPENDENCE [None]
  - INTENTIONAL DRUG MISUSE [None]
